FAERS Safety Report 6885335-5 (Version None)
Quarter: 2010Q3

REPORT INFORMATION
  Report Type: 
  Country: None (occurrence: None)
  Receive Date: 20100727
  Receipt Date: 20100715
  Transmission Date: 20110219
  Serious: Yes (Death, Other)
  Sender: FDA-Public Use
  Company Number: 2010070009

PATIENT
  Age: 32 Year
  Sex: Female
  Weight: 57.1532 kg

DRUGS (7)
  1. CARISOPRODOL [Suspect]
  2. MORPHINE [Suspect]
  3. COCAINE (COCAINE) [Suspect]
  4. HYDROCODONE BITARTRATE [Suspect]
  5. ALPRAZOLAM [Suspect]
  6. SERTRALINE HYDROCHLORIDE [Suspect]
  7. MEPROBAMATE [Suspect]

REACTIONS (11)
  - BENIGN HEPATIC NEOPLASM [None]
  - CONTUSION [None]
  - DROWNING [None]
  - EXCORIATION [None]
  - HAEMORRHAGE [None]
  - INJURY [None]
  - PETECHIAE [None]
  - PULMONARY CONGESTION [None]
  - PULMONARY OEDEMA [None]
  - RIB FRACTURE [None]
  - STERNAL FRACTURE [None]
